FAERS Safety Report 5818296-8 (Version None)
Quarter: 2008Q3

REPORT INFORMATION
  Report Type: 
  Country: None (occurrence: None)
  Receive Date: 20080717
  Receipt Date: 20080704
  Transmission Date: 20090109
  Serious: Yes (Other)
  Sender: FDA-Public Use
  Company Number: 2008JP003202

PATIENT
  Age: 58 Year
  Sex: Female

DRUGS (4)
  1. PROGRAF [Suspect]
     Indication: RHEUMATOID ARTHRITIS
     Dosage: 1 MG, ORAL
     Route: 048
     Dates: start: 20070914, end: 20080628
  2. PREDNISOLONE [Concomitant]
  3. OMEPRAL [Concomitant]
     Route: 048
  4. AMLODIPINE BESYLATE [Concomitant]
     Route: 048

REACTIONS (1)
  - TONGUE NEOPLASM MALIGNANT STAGE UNSPECIFIED [None]
